FAERS Safety Report 5802479-7 (Version None)
Quarter: 2008Q3

REPORT INFORMATION
  Report Type: 
  Country: None (occurrence: None)
  Receive Date: 20080708
  Receipt Date: 20080704
  Transmission Date: 20090109
  Serious: Yes (Life-Threatening, Hospitalization, Other)
  Sender: FDA-Public Use
  Company Number: GB-RANBAXY-2008RR-16211

PATIENT

DRUGS (15)
  1. GABAPENTIN [Suspect]
     Indication: BACK PAIN
     Dosage: 300 MG, TID
     Route: 048
     Dates: start: 20080528, end: 20080602
  2. GABAPENTIN [Suspect]
     Dosage: 100 MG, QID
     Dates: end: 20080528
  3. ALENDRONIC ACID [Concomitant]
     Dosage: UNK
     Route: 065
  4. ASPIRIN [Concomitant]
     Dosage: 75 MG, QD
     Route: 065
  5. ATORVASTATIN [Concomitant]
     Dosage: 20 MG, BID
     Route: 065
  6. ATROVENT [Concomitant]
     Dosage: 500 UG, QID
     Route: 065
  7. BECLOMETHASONE DIPROPIONATE [Concomitant]
     Dosage: 2 DF, BID
     Route: 055
  8. CIPROFLOXACIN [Concomitant]
     Dosage: 500 MG, BID
     Route: 065
  9. FENTANYL [Concomitant]
     Dosage: 50 UG, UNK
     Route: 065
  10. FUROSEMIDE [Concomitant]
     Dosage: 40 MG, QD
     Route: 065
  11. LEVOTHYROXINE SODIUM [Concomitant]
     Dosage: 125 UG, QD
     Route: 065
  12. PREDNISOLONE [Concomitant]
     Dosage: 40 MG, QD
     Route: 048
     Dates: start: 20080528
  13. ALBUTEROL [Concomitant]
     Dosage: 5 MG, QID
     Route: 065
  14. SALMETEROL [Concomitant]
     Dosage: 2 DF, BID
     Route: 055
  15. THEOPHYLLINE [Concomitant]
     Dosage: 300 MG, BID
     Route: 065

REACTIONS (2)
  - ESCHERICHIA SEPSIS [None]
  - NEUTROPENIA [None]
